FAERS Safety Report 11054990 (Version 1)
Quarter: 2015Q2

REPORT INFORMATION
  Report Type: Spontaneous
  Country: None (occurrence: None)
  Receive Date: 20150421
  Receipt Date: 20150421
  Transmission Date: 20150821
  Serious: Yes (Other)
  Sender: FDA-Public Use
  Company Number: None

PATIENT
  Age: 62 Year
  Sex: Female
  Weight: 53.07 kg

DRUGS (10)
  1. L-THYROXINE [Concomitant]
     Active Substance: LEVOTHYROXINE
  2. CALCIUM [Concomitant]
     Active Substance: CALCIUM
  3. CHOLESTOFF [Concomitant]
  4. MULTI-VITAMIN [Concomitant]
     Active Substance: .ALPHA.-TOCOPHEROL ACETATE, DL-\ASCORBIC ACID\CYANOCOBALAMIN\FLUORIDE ION\FOLIC ACID\NIACIN\PYRIDOXINE\RIBOFLAVIN\THIAMINE\VITAMIN A\VITAMIN D
  5. GLUCOSAMINE [Concomitant]
     Active Substance: GLUCOSAMINE
  6. LUTEIN [Concomitant]
     Active Substance: LUTEIN
  7. GABAPENTIN. [Suspect]
     Active Substance: GABAPENTIN
     Indication: INSOMNIA
     Dosage: 1 ONCE DAILY TAKEN BY MOUTH
     Route: 048
     Dates: start: 20150302, end: 20150313
  8. PERCOCET [Suspect]
     Active Substance: ACETAMINOPHEN\OXYCODONE HYDROCHLORIDE
     Indication: PROCEDURAL PAIN
     Dosage: 1 FOUR TIMES DAILY TAKEN BY MOUTH
     Route: 048
     Dates: start: 20150312, end: 20150317
  9. FISH OIL [Concomitant]
     Active Substance: FISH OIL
  10. MAGNESIUM [Concomitant]
     Active Substance: MAGNESIUM

REACTIONS (3)
  - Weight increased [None]
  - Joint swelling [None]
  - Peripheral swelling [None]

NARRATIVE: CASE EVENT DATE: 20150313
